FAERS Safety Report 11046080 (Version 2)
Quarter: 2015Q2

REPORT INFORMATION
  Report Type: Spontaneous
  Country: US (occurrence: US)
  Receive Date: 20150418
  Receipt Date: 20150524
  Transmission Date: 20150821
  Serious: No
  Sender: FDA-Public Use
  Company Number: US-JNJFOC-20150104973

PATIENT
  Age: 64 Year
  Sex: Female
  Weight: 113.4 kg

DRUGS (2)
  1. NIZORAL A-D [Suspect]
     Active Substance: KETOCONAZOLE
     Indication: RASH PRURITIC
     Dosage: SMALL DOLLAP, EVERY 3-4 DAYS
     Route: 061
     Dates: start: 20141224
  2. NIZORAL A-D [Suspect]
     Active Substance: KETOCONAZOLE
     Indication: HAIR GROWTH ABNORMAL
     Dosage: SMALL DOLLAP, EVERY 3-4 DAYS
     Route: 061
     Dates: start: 20141224

REACTIONS (2)
  - Drug prescribing error [Unknown]
  - Intentional product misuse [Unknown]
